FAERS Safety Report 16724848 (Version 2)
Quarter: 2019Q4

REPORT INFORMATION
  Report Type: Report from Study
  Country: US (occurrence: US)
  Receive Date: 20190821
  Receipt Date: 20191120
  Transmission Date: 20200122
  Serious: Yes (Hospitalization, Other)
  Sender: FDA-Public Use
  Company Number: US-ROCHE-2376070

PATIENT
  Age: 62 Year
  Sex: Female

DRUGS (2)
  1. OCREVUS [Suspect]
     Active Substance: OCRELIZUMAB
     Indication: RELAPSING MULTIPLE SCLEROSIS
     Route: 042
     Dates: start: 20181218
  2. OCREVUS [Suspect]
     Active Substance: OCRELIZUMAB
     Dosage: LATEST DOSE: 8 MONTHS AGO
     Route: 042

REACTIONS (4)
  - Colon cancer [Unknown]
  - Anaemia [Unknown]
  - Appendicitis perforated [Recovered/Resolved]
  - Appendicitis [Unknown]

NARRATIVE: CASE EVENT DATE: 201902
